FAERS Safety Report 10260824 (Version 1)
Quarter: 2014Q2

REPORT INFORMATION
  Report Type: Report from Study
  Country: CA (occurrence: CA)
  Receive Date: 20140626
  Receipt Date: 20140626
  Transmission Date: 20141212
  Serious: Yes (Other)
  Sender: FDA-Public Use
  Company Number: CA-BRISTOL-MYERS SQUIBB COMPANY-20960928

PATIENT
  Age: 51 Year
  Sex: Female

DRUGS (9)
  1. ORENCIA [Suspect]
     Indication: RHEUMATOID ARTHRITIS
     Route: 042
     Dates: start: 20111107
  2. METHOTREXATE [Concomitant]
  3. PREDNISONE [Concomitant]
  4. NORVASC [Concomitant]
  5. ALTACE [Concomitant]
  6. WELLBUTRIN [Concomitant]
  7. CELEXA [Concomitant]
  8. TYLENOL WITH CODEINE [Concomitant]
  9. PERCOCET [Concomitant]

REACTIONS (1)
  - Atrial fibrillation [Unknown]
